FAERS Safety Report 11789826 (Version 2)
Quarter: 2015Q4

REPORT INFORMATION
  Report Type: Report from Study
  Country: BR (occurrence: BR)
  Receive Date: 20151201
  Receipt Date: 20151222
  Transmission Date: 20160305
  Serious: Yes (Hospitalization, Other)
  Sender: FDA-Public Use
  Company Number: PHHY2015BR156724

PATIENT
  Sex: Female
  Weight: 42 kg

DRUGS (3)
  1. EXJADE [Suspect]
     Active Substance: DEFERASIROX
     Dosage: 1 DF, QD
     Route: 048
  2. HYDREA [Concomitant]
     Active Substance: HYDROXYUREA
     Indication: PRODUCT USED FOR UNKNOWN INDICATION
     Dosage: UNK UNK, QD (AT LUNCH TIME)
     Route: 065
  3. EXJADE [Suspect]
     Active Substance: DEFERASIROX
     Indication: SICKLE CELL ANAEMIA
     Dosage: 2 DF, UNK
     Route: 048

REACTIONS (12)
  - Cerebrovascular accident [Unknown]
  - Blood viscosity increased [Unknown]
  - Cardiac murmur [Unknown]
  - Spinal deformity [Unknown]
  - Poor venous access [Unknown]
  - Headache [Unknown]
  - Pelvic deformity [Unknown]
  - Cholelithiasis [Unknown]
  - Sickle cell anaemia with crisis [Recovered/Resolved]
  - Pain [Recovered/Resolved]
  - Vascular fragility [Unknown]
  - Weight increased [Unknown]
